FAERS Safety Report 9094484 (Version 2)
Quarter: 2013Q1

REPORT INFORMATION
  Report Type: Spontaneous
  Country: SE (occurrence: SE)
  Receive Date: 20130218
  Receipt Date: 20130305
  Transmission Date: 20140127
  Serious: Yes (Hospitalization)
  Sender: FDA-Public Use
  Company Number: SE-ELI_LILLY_AND_COMPANY-SE201302002208

PATIENT
  Age: 52 Year
  Sex: Male

DRUGS (2)
  1. ZYPADHERA [Suspect]
     Indication: SCHIZOPHRENIA
     Dosage: 405 MG, MONTHLY (1/M)
     Dates: start: 2012
  2. CIPRALEX [Concomitant]

REACTIONS (4)
  - Urosepsis [Unknown]
  - Food craving [Unknown]
  - Type 2 diabetes mellitus [Unknown]
  - Urinary retention [Unknown]
